FAERS Safety Report 15276485 (Version 1)
Quarter: 2018Q3

REPORT INFORMATION
  Report Type: Spontaneous
  Country: US (occurrence: US)
  Receive Date: 20180728
  Receipt Date: 20180728
  Transmission Date: 20181010
  Serious: No
  Sender: FDA-Public Use
  Company Number: None

PATIENT
  Age: 77 Year
  Sex: Male
  Weight: 83.5 kg

DRUGS (2)
  1. LEUPROLIDE ACETATE. [Suspect]
     Active Substance: LEUPROLIDE ACETATE
     Dates: end: 20170417
  2. CASODEX [Suspect]
     Active Substance: BICALUTAMIDE
     Dates: end: 20161014

REACTIONS (3)
  - Coronary artery disease [None]
  - Dyspnoea [None]
  - Chest discomfort [None]

NARRATIVE: CASE EVENT DATE: 20180501
